FAERS Safety Report 13270809 (Version 1)
Quarter: 2017Q1

REPORT INFORMATION
  Report Type: Spontaneous
  Country: CA (occurrence: CA)
  Receive Date: 20170225
  Receipt Date: 20170225
  Transmission Date: 20170428
  Serious: Yes (Hospitalization)
  Sender: FDA-Public Use
  Company Number: CA-TEVA-743013ACC

PATIENT
  Age: 53 Year
  Sex: Male
  Weight: 65.83 kg

DRUGS (4)
  1. SALBUTAMOL [Concomitant]
     Active Substance: ALBUTEROL
  2. FLUTICASONE. [Concomitant]
     Active Substance: FLUTICASONE
  3. QUETIAPINE XR [Suspect]
     Active Substance: QUETIAPINE
     Indication: INSOMNIA
     Dosage: 150 MILLIGRAM DAILY;
     Route: 048
  4. RISPERIDONE. [Suspect]
     Active Substance: RISPERIDONE
     Indication: SCHIZOPHRENIA
     Dosage: 3 MILLIGRAM DAILY;
     Route: 048

REACTIONS (4)
  - Dysuria [Unknown]
  - Priapism [Unknown]
  - Pain [Unknown]
  - Ischaemia [Unknown]
